FAERS Safety Report 17946637 (Version 1)
Quarter: 2020Q2

REPORT INFORMATION
  Report Type: Spontaneous
  Country: US (occurrence: US)
  Receive Date: 20200625
  Receipt Date: 20200625
  Transmission Date: 20200714
  Serious: Yes (Death)
  Sender: FDA-Public Use
  Company Number: None

PATIENT
  Age: 60 Year
  Sex: Male

DRUGS (5)
  1. ENTYVIO [Suspect]
     Active Substance: VEDOLIZUMAB
     Indication: CROHN^S DISEASE
     Dosage: ?          OTHER FREQUENCY:Q 8 WEEKS;?
     Route: 042
     Dates: start: 20190717
  2. IMURAN [Concomitant]
     Active Substance: AZATHIOPRINE
  3. TRICOR [Concomitant]
     Active Substance: FENOFIBRATE
  4. QUINAPRIL. [Concomitant]
     Active Substance: QUINAPRIL
  5. SERTRALINE [Concomitant]
     Active Substance: SERTRALINE HYDROCHLORIDE

REACTIONS (1)
  - Death [None]

NARRATIVE: CASE EVENT DATE: 20200529
